FAERS Safety Report 8235149-9 (Version None)
Quarter: 2012Q1

REPORT INFORMATION
  Report Type: 
  Country: None (occurrence: None)
  Receive Date: 20120326
  Receipt Date: 20120319
  Transmission Date: 20120608
  Serious: Yes (Hospitalization)
  Sender: FDA-Public Use
  Company Number: JP-VERTEX PHARMACEUTICALS INC.-AE-2012-000701

PATIENT
  Age: 69 Year
  Sex: Female

DRUGS (11)
  1. TELAVIC (TELAPREVIR) [Suspect]
     Indication: HEPATITIS C
     Dates: start: 20111206, end: 20120108
  2. SELEBEX [Concomitant]
     Route: 048
  3. LOCHOLEST [Concomitant]
     Route: 048
  4. DIOVAN [Concomitant]
     Route: 048
  5. AMLODIPINE [Concomitant]
     Route: 048
  6. ALOSENN [Concomitant]
     Route: 048
     Dates: start: 20120115
  7. DOGMATYL [Concomitant]
     Route: 048
  8. LENDORMIN [Concomitant]
     Route: 048
     Dates: start: 20120114
  9. REBETOL [Concomitant]
     Indication: HEPATITIS C
     Route: 048
     Dates: start: 20111206, end: 20120108
  10. ALLOPURINOL [Concomitant]
     Route: 048
     Dates: end: 20120109
  11. PEGINTERFERON ALFA-2A [Concomitant]
     Indication: HEPATITIS C
     Route: 051
     Dates: start: 20111206

REACTIONS (4)
  - BLOOD URIC ACID INCREASED [None]
  - ERYTHEMA MULTIFORME [None]
  - PYREXIA [None]
  - NAUSEA [None]
